FAERS Safety Report 7591513-2 (Version None)
Quarter: 2011Q2

REPORT INFORMATION
  Report Type: 
  Country: None (occurrence: None)
  Receive Date: 20110627
  Receipt Date: 20110613
  Transmission Date: 20111010
  Serious: Yes (Death, Life-Threatening, Other)
  Sender: FDA-Public Use
  Company Number: 2011MA007144

PATIENT
  Age: 41 Year
  Sex: Female

DRUGS (3)
  1. FLUNITRAZEPAM (FLUNITRAZEPAM) [Suspect]
  2. CITALOPRAM HYDROBROMIDE [Suspect]
     Indication: DEPRESSION
     Dosage: 10 MG;
  3. TOPIRAMATE [Suspect]
     Dosage: 100 MG;

REACTIONS (8)
  - RESUSCITATION [None]
  - PULMONARY OEDEMA [None]
  - BRAIN OEDEMA [None]
  - TOXICITY TO VARIOUS AGENTS [None]
  - OVERDOSE [None]
  - ASPIRATION [None]
  - COMA [None]
  - SHOCK [None]
